FAERS Safety Report 5919765-2 (Version None)
Quarter: 2008Q4

REPORT INFORMATION
  Report Type: 
  Country: None (occurrence: None)
  Receive Date: 20081015
  Receipt Date: 20081007
  Transmission Date: 20090506
  Serious: Yes (Hospitalization)
  Sender: FDA-Public Use
  Company Number: US-PFIZER INC-2007062620

PATIENT
  Sex: Male
  Weight: 107 kg

DRUGS (15)
  1. IRINOTECAN HCL [Suspect]
     Indication: GLIOBLASTOMA MULTIFORME
     Route: 042
     Dates: start: 20070711, end: 20070711
  2. IRINOTECAN HCL [Suspect]
     Route: 042
     Dates: start: 20070718, end: 20070718
  3. TEMODAR [Suspect]
     Indication: GLIOBLASTOMA MULTIFORME
     Route: 048
     Dates: start: 20070711, end: 20070715
  4. DEXAMETHASONE [Concomitant]
     Route: 048
  5. BENAZEPRIL HYDROCHLORIDE [Concomitant]
     Route: 048
  6. ZANTAC [Concomitant]
     Route: 048
  7. FINASTERIDE [Concomitant]
     Route: 048
  8. HYDROCHLOROTHIAZIDE [Concomitant]
     Route: 048
  9. POTASSIUM CHLORIDE [Concomitant]
     Route: 048
  10. COREG [Concomitant]
     Route: 048
  11. METFORMIN [Concomitant]
     Route: 048
  12. CRESTOR [Concomitant]
     Route: 048
  13. INSULIN [Concomitant]
     Dosage: FREQ:SLIDING SCALE
  14. MULTI-VITAMINS [Concomitant]
     Dosage: FREQ:DAILY
     Route: 048
  15. FISH OIL [Concomitant]
     Route: 048

REACTIONS (2)
  - HYPONATRAEMIA [None]
  - NEUTROPENIA [None]
